FAERS Safety Report 13598135 (Version 1)
Quarter: 2017Q2

REPORT INFORMATION
  Report Type: Spontaneous
  Country: US (occurrence: US)
  Receive Date: 20170531
  Receipt Date: 20170531
  Transmission Date: 20170830
  Serious: No
  Sender: FDA-Public Use
  Company Number: US-SHIRE-US201711934

PATIENT
  Sex: Female

DRUGS (1)
  1. XIIDRA [Suspect]
     Active Substance: LIFITEGRAST
     Indication: DRY EYE
     Dosage: 1 GTT IN EACH EYE, 2X/DAY:BID EXACTLY 12 HOURS APART 8AM AND 8PM
     Route: 047
     Dates: start: 201705, end: 20170525

REACTIONS (5)
  - Blister [Unknown]
  - Instillation site reaction [Recovered/Resolved]
  - Headache [Recovered/Resolved]
  - Eyelid oedema [Unknown]
  - Instillation site pain [Recovered/Resolved]
